FAERS Safety Report 10404088 (Version 1)
Quarter: 2014Q1

REPORT INFORMATION
  Report Type: Spontaneous
  Country: US (occurrence: None)
  Receive Date: 20130815
  Receipt Date: 20130815
  Transmission Date: 20141002
  Serious: Yes (Hospitalization, Other)
  Sender: FDA-Public Use
  Company Number: ADR-2011-11208

PATIENT
  Age: 53 Year
  Sex: Male

DRUGS (2)
  1. LIORESAL INTRATHECAL (BACLOFEN INJECTION) [Suspect]
     Indication: MUSCLE SPASTICITY
     Route: 037
  2. LIORESAL INTRATHECAL (BACLOFEN INJECTION) [Suspect]
     Indication: CRANIOCEREBRAL INJURY
     Route: 037

REACTIONS (6)
  - Therapeutic response unexpected [None]
  - Abasia [None]
  - Procedural vomiting [None]
  - Nausea [None]
  - Gait disturbance [None]
  - Ileus [None]
